FAERS Safety Report 4275157-6 (Version None)
Quarter: 2004Q1

REPORT INFORMATION
  Report Type: 
  Country: None (occurrence: None)
  Receive Date: 20040116
  Receipt Date: 20040107
  Transmission Date: 20041129
  Serious: Yes (Hospitalization)
  Sender: FDA-Public Use
  Company Number: 2004-01-0110

PATIENT
  Age: 53 Year
  Sex: Male
  Weight: 84 kg

DRUGS (7)
  1. REBETOL [Suspect]
     Indication: HEPATITIS C
     Dosage: ORAL
     Route: 048
  2. BACTRIM [Suspect]
     Dosage: ORAL
     Route: 048
  3. MORPHINE [Suspect]
     Dosage: ORAL
     Route: 048
  4. CRIXIVAN [Suspect]
     Indication: HIV INFECTION
     Dosage: ORAL
     Route: 048
  5. ZIAGEN [Concomitant]
  6. NORVIR [Concomitant]
  7. VIREAD [Concomitant]

REACTIONS (2)
  - OSTEOARTHRITIS [None]
  - TENDONITIS [None]
